FAERS Safety Report 7225037-9 (Version None)
Quarter: 2011Q1

REPORT INFORMATION
  Report Type: 
  Country: None (occurrence: None)
  Receive Date: 20110113
  Receipt Date: 20110110
  Transmission Date: 20110831
  Serious: Yes (Death, Hospitalization)
  Sender: FDA-Public Use
  Company Number: US-ABBOTT-11P-163-0696201-00

PATIENT
  Sex: Male
  Weight: 90.8 kg

DRUGS (1)
  1. HUMIRA [Suspect]
     Indication: PSORIASIS
     Dates: start: 20070101, end: 20101201

REACTIONS (4)
  - COLON CANCER METASTATIC [None]
  - HEPATIC FAILURE [None]
  - YELLOW SKIN [None]
  - ABDOMINAL PAIN [None]
